FAERS Safety Report 9259425 (Version 1)
Quarter: 2013Q2

REPORT INFORMATION
  Report Type: Spontaneous
  Country: US (occurrence: US)
  Receive Date: 20130427
  Receipt Date: 20130427
  Transmission Date: 20140414
  Serious: No
  Sender: FDA-Public Use
  Company Number: US-009507513-1304USA015210

PATIENT
  Sex: Female

DRUGS (1)
  1. PROVENTIL [Suspect]
     Route: 055

REACTIONS (2)
  - Expired drug administered [Unknown]
  - No adverse event [Unknown]
